FAERS Safety Report 19743608 (Version 1)
Quarter: 2021Q3

REPORT INFORMATION
  Report Type: Report from Study
  Country: None (occurrence: IL)
  Receive Date: 20210825
  Receipt Date: 20210825
  Transmission Date: 20211014
  Serious: Yes (Hospitalization, Other)
  Sender: FDA-Public Use
  Company Number: IL-ABBVIE-21K-082-4014241-00

PATIENT
  Sex: Female

DRUGS (2)
  1. HUMIRA [Suspect]
     Active Substance: ADALIMUMAB
     Route: 058
     Dates: start: 202107
  2. HUMIRA [Suspect]
     Active Substance: ADALIMUMAB
     Indication: CROHN^S DISEASE
     Route: 058
     Dates: start: 20201130

REACTIONS (6)
  - Hydrocephalus [Unknown]
  - Procedural pain [Not Recovered/Not Resolved]
  - Pneumonia [Recovered/Resolved]
  - Headache [Unknown]
  - Headache [Recovered/Resolved]
  - Acupuncture [Not Recovered/Not Resolved]

NARRATIVE: CASE EVENT DATE: 2021
